FAERS Safety Report 6631691-2 (Version None)
Quarter: 2010Q1

REPORT INFORMATION
  Report Type: 
  Country: None (occurrence: None)
  Receive Date: 20100312
  Receipt Date: 20100303
  Transmission Date: 20100710
  Serious: Yes (Other)
  Sender: FDA-Public Use
  Company Number: CA-JNJFOC-20090609002

PATIENT
  Sex: Female
  Weight: 93 kg

DRUGS (18)
  1. REMICADE [Suspect]
     Indication: SERONEGATIVE ARTHRITIS
     Route: 042
  2. REMICADE [Suspect]
     Route: 042
  3. REMICADE [Suspect]
     Route: 042
  4. REMICADE [Suspect]
     Route: 042
  5. TYLENOL-500 [Concomitant]
     Indication: PREMEDICATION
  6. BENADRYL [Concomitant]
     Indication: PREMEDICATION
  7. METHOTREXATE [Concomitant]
  8. FOLIC ACID [Concomitant]
  9. FENTANYL [Concomitant]
  10. LYRICA [Concomitant]
  11. PARIET [Concomitant]
  12. AMITRIPTYLINE HCL [Concomitant]
  13. ESTROGEN-PROGESTERONE [Concomitant]
  14. SYNTHROID [Concomitant]
  15. CALCIUM [Concomitant]
  16. VITAMIN D [Concomitant]
  17. VENLAFAXINE [Concomitant]
  18. FOSAMAX [Concomitant]

REACTIONS (8)
  - CHILLS [None]
  - CONTUSION [None]
  - HAEMATEMESIS [None]
  - HYPERHIDROSIS [None]
  - NAUSEA [None]
  - OEDEMA PERIPHERAL [None]
  - PAIN [None]
  - PAIN IN EXTREMITY [None]
